FAERS Safety Report 11932961 (Version 1)
Quarter: 2016Q1

REPORT INFORMATION
  Report Type: Spontaneous
  Country: None (occurrence: GB)
  Receive Date: 20160120
  Receipt Date: 20160120
  Transmission Date: 20160526
  Serious: Yes (Hospitalization, Other)
  Sender: FDA-Public Use
  Company Number: GB-PIERRE FABRE-1046695

PATIENT
  Age: 53 Year
  Sex: Female

DRUGS (5)
  1. CHLORHEXIDINE [Suspect]
     Active Substance: CHLORHEXIDINE
     Route: 065
  2. HERCEPTIN [Suspect]
     Active Substance: TRASTUZUMAB
     Route: 058
  3. NAVELBINE [Suspect]
     Active Substance: VINORELBINE TARTRATE
     Indication: PRODUCT USED FOR UNKNOWN INDICATION
     Route: 048
  4. CARBOPLATIN. [Suspect]
     Active Substance: CARBOPLATIN
     Route: 065
  5. GEMCITABINE [Suspect]
     Active Substance: GEMCITABINE\GEMCITABINE HYDROCHLORIDE
     Route: 065

REACTIONS (19)
  - Rhinorrhoea [Unknown]
  - Drug hypersensitivity [Unknown]
  - Limb discomfort [Unknown]
  - Pain in extremity [Unknown]
  - Allergy to chemicals [Unknown]
  - Lymphoedema [Unknown]
  - Movement disorder [Unknown]
  - Wound secretion [Unknown]
  - Wound [Unknown]
  - Anaemia [Unknown]
  - Wound haemorrhage [Unknown]
  - Constipation [Unknown]
  - Dysgeusia [Unknown]
  - Blood creatinine increased [Unknown]
  - Nausea [Unknown]
  - Cough [Unknown]
  - Neuropathy peripheral [Unknown]
  - Fatigue [Unknown]
  - Paraesthesia [Unknown]
